FAERS Safety Report 15254978 (Version 1)
Quarter: 2018Q3

REPORT INFORMATION
  Report Type: Spontaneous
  Country: CH (occurrence: CH)
  Receive Date: 20180808
  Receipt Date: 20180808
  Transmission Date: 20181010
  Serious: Yes (Hospitalization, Other)
  Sender: FDA-Public Use
  Company Number: CH-MYLANLABS-2018M1059099

PATIENT
  Age: 48 Year
  Sex: Female

DRUGS (2)
  1. PARACETAMOL [Interacting]
     Active Substance: ACETAMINOPHEN
     Indication: PRODUCT USED FOR UNKNOWN INDICATION
     Route: 048
  2. QUETIAPINE. [Suspect]
     Active Substance: QUETIAPINE
     Indication: PRODUCT USED FOR UNKNOWN INDICATION
     Route: 048

REACTIONS (6)
  - Coma [Recovered/Resolved]
  - Drug interaction [Recovered/Resolved]
  - Hepatotoxicity [Recovered/Resolved]
  - Bezoar [Recovered/Resolved]
  - Toxicity to various agents [Recovered/Resolved]
  - Hypotonia [Recovered/Resolved]
